FAERS Safety Report 8697908 (Version 3)
Quarter: 2014Q2

REPORT INFORMATION
  Report Type: Spontaneous
  Country: US (occurrence: US)
  Receive Date: 20120801
  Receipt Date: 20140501
  Transmission Date: 20141212
  Serious: Yes (Hospitalization)
  Sender: FDA-Public Use
  Company Number: US-B.I. PHARMACEUTICALS,INC./RIDGEFIELD-2012-BP-16588BP

PATIENT
  Age: 78 Year
  Sex: Female
  Weight: 79.38 kg

DRUGS (16)
  1. PRADAXA [Suspect]
     Indication: ATRIAL FIBRILLATION
     Dosage: 300 MG
     Route: 048
     Dates: start: 20111003, end: 20120405
  2. CELEBREX [Suspect]
     Indication: ARTHRALGIA
     Dosage: 200 MG
     Route: 065
     Dates: end: 20120402
  3. ALEVE [Suspect]
     Indication: ARTHRALGIA
     Route: 065
     Dates: start: 20120402, end: 20120405
  4. VERAPAMIL [Concomitant]
     Dosage: 180 MG
     Route: 065
  5. LIPITOR [Concomitant]
     Dosage: 10 MG
     Route: 065
  6. NIASPAN [Concomitant]
     Dosage: 2000 MG
     Route: 065
  7. ASPIRIN [Concomitant]
     Dosage: 81 MG
     Route: 065
     Dates: end: 20120405
  8. METFORMIN [Concomitant]
     Dosage: 2000 MG
     Route: 065
  9. BENICAR/HCTZ [Concomitant]
     Route: 065
  10. CARVEDILOL [Concomitant]
     Dosage: 50 MG
     Route: 065
  11. INDAPAMIDE [Concomitant]
     Dosage: 2.5 MG
     Route: 065
  12. LEVOTHYROXINE [Concomitant]
     Dosage: 75 MCG
     Route: 065
  13. TENEX [Concomitant]
     Dosage: 2 MG
     Route: 065
  14. MULTIVITAMIN [Concomitant]
     Route: 065
  15. FLAXSEED [Concomitant]
     Route: 065
  16. GLUCOSAMINE [Concomitant]
     Route: 065

REACTIONS (5)
  - Lower gastrointestinal haemorrhage [Recovered/Resolved]
  - Haemorrhagic anaemia [Unknown]
  - Hypovolaemic shock [Recovered/Resolved]
  - Renal failure acute [Unknown]
  - Contusion [Unknown]
